FAERS Safety Report 7644689 (Version 6)
Quarter: 2012Q4

REPORT INFORMATION
  Report Type: 
  Country: US (occurrence: US)
  Receive Date: 20101028
  Receipt Date: 20121212
  Transmission Date: 20130627
  Serious: Yes (Hospitalization, Other)
  Sender: FDA-Public Use
  Company Number: US-ACTELION-A-US2010-40818

PATIENT
  Age: 68 Year
  Sex: Female

DRUGS (3)
  1. TRACLEER [Suspect]
     Indication: PULMONARY ARTERIAL HYPERTENSION
     Dosage: UNK
     Route: 048
     Dates: start: 20091208
  2. REVATIO [Concomitant]
  3. COUMADIN [Concomitant]

REACTIONS (13)
  - Haemorrhage [Unknown]
  - Arterial occlusive disease [Unknown]
  - Asthenia [Unknown]
  - Anaemia [Unknown]
  - Gait disturbance [Unknown]
  - Stent placement [Unknown]
  - Haemoglobin decreased [Unknown]
  - Red blood cell count decreased [Unknown]
  - Arrhythmia [Recovering/Resolving]
  - Dyspnoea [Unknown]
  - Swelling [Unknown]
  - Exostosis [Unknown]
  - Blood iron decreased [Unknown]
